FAERS Safety Report 16991211 (Version 1)
Quarter: 2019Q4

REPORT INFORMATION
  Report Type: Spontaneous
  Country: US (occurrence: US)
  Receive Date: 20191104
  Receipt Date: 20191104
  Transmission Date: 20200122
  Serious: Yes (Life-Threatening)
  Sender: FDA-Public Use
  Company Number: NVSC2019US022508

PATIENT

DRUGS (2)
  1. VALSARTAN. [Suspect]
     Active Substance: VALSARTAN
     Indication: INTENTIONAL OVERDOSE
     Dosage: UNK
     Route: 065
  2. PROPAFENONE. [Suspect]
     Active Substance: PROPAFENONE
     Indication: INTENTIONAL OVERDOSE
     Dosage: UNK
     Route: 065

REACTIONS (6)
  - Seizure [Recovering/Resolving]
  - Overdose [Unknown]
  - Depressed level of consciousness [Recovering/Resolving]
  - Electrocardiogram QT prolonged [Recovering/Resolving]
  - Ventricular fibrillation [Recovering/Resolving]
  - Hypotension [Recovering/Resolving]
